FAERS Safety Report 21922306 (Version 1)
Quarter: 2023Q1

REPORT INFORMATION
  Report Type: Spontaneous
  Country: US (occurrence: US)
  Receive Date: 20230128
  Receipt Date: 20230128
  Transmission Date: 20230418
  Serious: No
  Sender: FDA-Public Use
  Company Number: US-TEVA-2023-US-2845336

PATIENT
  Age: 33 Year
  Sex: Female

DRUGS (3)
  1. NORTRIPTYLINE HYDROCHLORIDE [Suspect]
     Active Substance: NORTRIPTYLINE HYDROCHLORIDE
     Indication: Vestibular migraine
     Dosage: 30 MILLIGRAM DAILY;
     Route: 065
     Dates: start: 201704, end: 202212
  2. NORTRIPTYLINE HYDROCHLORIDE [Suspect]
     Active Substance: NORTRIPTYLINE HYDROCHLORIDE
     Indication: Headache
     Route: 065
  3. NORTRIPTYLINE HYDROCHLORIDE [Suspect]
     Active Substance: NORTRIPTYLINE HYDROCHLORIDE
     Indication: Migraine with aura
     Dosage: 30 MILLIGRAM DAILY;
     Route: 065
     Dates: start: 20221214, end: 20230101

REACTIONS (9)
  - Migraine [Recovered/Resolved]
  - Withdrawal syndrome [Recovered/Resolved]
  - Photosensitivity reaction [Unknown]
  - Motion sickness [Unknown]
  - Nausea [Unknown]
  - Drug ineffective [Recovered/Resolved]
  - Poor quality product administered [Unknown]
  - Product prescribing issue [Unknown]
  - Product quality issue [Unknown]

NARRATIVE: CASE EVENT DATE: 20170101
